FAERS Safety Report 8144672-7 (Version None)
Quarter: 2012Q1

REPORT INFORMATION
  Report Type: 
  Country: None (occurrence: None)
  Receive Date: 20120217
  Receipt Date: 20120208
  Transmission Date: 20120608
  Serious: Yes (Hospitalization, Other)
  Sender: FDA-Public Use
  Company Number: CH-JNJFOC-20120108728

PATIENT
  Age: 40 Year
  Sex: Female

DRUGS (3)
  1. ANAFRANIL [Suspect]
     Indication: PRODUCT USED FOR UNKNOWN INDICATION
     Route: 048
  2. TRAMADOL HCL [Suspect]
     Indication: PRODUCT USED FOR UNKNOWN INDICATION
     Route: 048
     Dates: start: 20110103, end: 20110103
  3. IRFEN [Concomitant]
     Indication: PRODUCT USED FOR UNKNOWN INDICATION
     Dosage: AS NEEDED
     Route: 048

REACTIONS (8)
  - LIVER INJURY [None]
  - COMA [None]
  - HEPATIC ENZYME INCREASED [None]
  - DRUG LEVEL INCREASED [None]
  - SUICIDE ATTEMPT [None]
  - STUPOR [None]
  - INTENTIONAL OVERDOSE [None]
  - NAUSEA [None]
